FAERS Safety Report 7636271-8 (Version None)
Quarter: 2011Q3

REPORT INFORMATION
  Report Type: 
  Country: None (occurrence: None)
  Receive Date: 20110726
  Receipt Date: 20110627
  Transmission Date: 20111222
  Serious: Yes (Hospitalization)
  Sender: FDA-Public Use
  Company Number: IT-BAYER-2011-055260

PATIENT
  Age: 58 Year
  Sex: Male

DRUGS (10)
  1. ZANTAC [Concomitant]
     Route: 048
  2. PROCORALAN [Concomitant]
     Dosage: UNK
     Route: 048
  3. ASPIRIN [Suspect]
     Indication: HYPERTENSIVE HEART DISEASE
     Dosage: 100 MG, QD
     Route: 048
     Dates: start: 20060621, end: 20110621
  4. PLAVIX [Suspect]
     Dosage: DAILY DOSE 75 MG
     Route: 048
     Dates: start: 20060621, end: 20110621
  5. TICLID [Suspect]
     Dosage: DAILY DOSE 250 MG
     Route: 048
     Dates: start: 20060621
  6. ENALAPRIL MALEATE [Concomitant]
     Route: 048
  7. ATORVASTATIN CALCIUM [Concomitant]
     Route: 048
  8. CARDICOR [Concomitant]
     Route: 048
  9. COUMADIN [Suspect]
     Dosage: DAILY DOSE 1.3 MG
     Route: 048
     Dates: start: 20110522, end: 20110621
  10. LASIX [Concomitant]
     Route: 048

REACTIONS (2)
  - MELAENA [None]
  - DUODENAL ULCER HAEMORRHAGE [None]
